FAERS Safety Report 7565744-1 (Version None)
Quarter: 2011Q2

REPORT INFORMATION
  Report Type: 
  Country: None (occurrence: None)
  Receive Date: 20110616
  Receipt Date: 20110606
  Transmission Date: 20111010
  Serious: Yes (Other)
  Sender: FDA-Public Use
  Company Number: 2011SP007959

PATIENT
  Age: 74 Year
  Sex: Male
  Weight: 104.3273 kg

DRUGS (13)
  1. HYDROCHLOROTHIAZIDE [Concomitant]
  2. ASCORBIC ACID [Concomitant]
  3. CALCIUM CARBONATE [Concomitant]
  4. MAGNESIUM [Concomitant]
  5. FLAX SEED OIL [Concomitant]
  6. VITAMIN A [Concomitant]
  7. ASPIRIN [Concomitant]
  8. VITAMIN D [Concomitant]
  9. PRAVASTATIN [Concomitant]
  10. POTASSIUM [Concomitant]
  11. MIRALAX [Suspect]
     Indication: CONSTIPATION
     Dosage: 17 GM;QD;PO; 17 GM; PO
     Route: 048
     Dates: start: 20090801, end: 20110101
  12. MIRALAX [Suspect]
     Indication: CONSTIPATION
     Dosage: 17 GM;QD;PO; 17 GM; PO
     Route: 048
  13. GLIMEPIRIDE [Concomitant]

REACTIONS (8)
  - MEMORY IMPAIRMENT [None]
  - LUNG NEOPLASM [None]
  - HEPATIC NEOPLASM [None]
  - SPLEEN DISORDER [None]
  - SELF-MEDICATION [None]
  - DRY SKIN [None]
  - INCORRECT DRUG ADMINISTRATION DURATION [None]
  - NAIL DISORDER [None]
